FAERS Safety Report 4482332-4 (Version None)
Quarter: 2004Q4

REPORT INFORMATION
  Report Type: 
  Country: None (occurrence: None)
  Receive Date: 20041022
  Receipt Date: 20040827
  Transmission Date: 20050328
  Serious: Yes (Other)
  Sender: FDA-Public Use
  Company Number: FR-ROCHE-379404

PATIENT
  Age: 30 Year
  Sex: Female
  Weight: 55 kg

DRUGS (3)
  1. ROACCUTANE [Suspect]
     Indication: ACNE
     Route: 048
     Dates: start: 19860101, end: 19891231
  2. CYCLEANE 20 [Suspect]
     Indication: CONTRACEPTION
     Route: 048
     Dates: start: 19920101, end: 20000630
  3. LEVONORGESTREL [Suspect]
     Indication: CONTRACEPTION
     Route: 065

REACTIONS (3)
  - FOCAL NODULAR HYPERPLASIA [None]
  - GAMMA-GLUTAMYLTRANSFERASE INCREASED [None]
  - HYPERPLASIA [None]
